FAERS Safety Report 12629916 (Version 1)
Quarter: 2016Q3

REPORT INFORMATION
  Report Type: Spontaneous
  Country: US (occurrence: US)
  Receive Date: 20160808
  Receipt Date: 20160808
  Transmission Date: 20161109
  Serious: No
  Sender: FDA-Public Use
  Company Number: US-LEO PHARMA-243476

PATIENT
  Age: 41 Year
  Sex: Female

DRUGS (2)
  1. METHOTHREXATE [Concomitant]
     Active Substance: METHOTREXATE SODIUM
     Indication: PRODUCT USED FOR UNKNOWN INDICATION
  2. DAIVOBET [Suspect]
     Active Substance: BETAMETHASONE DIPROPIONATE\CALCIPOTRIENE
     Indication: DERMATITIS ATOPIC
     Route: 061

REACTIONS (2)
  - Product use issue [Unknown]
  - Application site erythema [Recovered/Resolved]
